FAERS Safety Report 7354821-6 (Version None)
Quarter: 2011Q1

REPORT INFORMATION
  Report Type: 
  Country: None (occurrence: None)
  Receive Date: 20110316
  Receipt Date: 20110303
  Transmission Date: 20110831
  Serious: Yes (Other)
  Sender: FDA-Public Use
  Company Number: JP-ASTRAZENECA-2011SE02172

PATIENT
  Age: 67 Year
  Sex: Male
  Weight: 56 kg

DRUGS (3)
  1. GASTER D [Concomitant]
     Route: 048
     Dates: start: 20010205
  2. ECARD COMBINATION [Suspect]
     Indication: HYPERTENSION
     Dosage: DAILY
     Route: 048
     Dates: start: 20090805
  3. MARZULENE S [Concomitant]
     Route: 048
     Dates: start: 20010205

REACTIONS (1)
  - GASTRIC CANCER [None]
